FAERS Safety Report 10344278 (Version 1)
Quarter: 2014Q3

REPORT INFORMATION
  Report Type: Spontaneous
  Country: US (occurrence: None)
  Receive Date: 20140725
  Receipt Date: 20140725
  Transmission Date: 20150326
  Serious: Yes (Hospitalization)
  Sender: FDA-Public Use
  Company Number: None

PATIENT
  Age: 64 Year
  Sex: Male

DRUGS (3)
  1. ASPRIN [Concomitant]
     Active Substance: ASPIRIN
  2. BP MEDICATION [Concomitant]
  3. ENBREL [Suspect]
     Active Substance: ETANERCEPT
     Indication: EMERGENCY CARE EXAMINATION
     Dosage: 50MG ONCE WEEKLY SUBCUTANEOUSLY
     Route: 058
     Dates: start: 20120425

REACTIONS (1)
  - Transient ischaemic attack [None]

NARRATIVE: CASE EVENT DATE: 20140721
